FAERS Safety Report 4436887-6 (Version None)
Quarter: 2004Q3

REPORT INFORMATION
  Report Type: 
  Country: None (occurrence: None)
  Receive Date: 20040827
  Receipt Date: 20040804
  Transmission Date: 20050211
  Serious: Yes (Hospitalization)
  Sender: FDA-Public Use
  Company Number: 2004AP000685

PATIENT
  Age: 79 Year
  Sex: Male

DRUGS (11)
  1. PAROXETINE HYDROCHLORIDE [Suspect]
     Indication: DEPRESSION
     Dosage: 20 MG; EVERY DAY (DAILY),ORAL
     Route: 048
  2. CARBAMAZEPINE [Suspect]
     Indication: NEUROPATHIC PAIN
     Dosage: 400 MG; EVERY DAY (DAILY)
  3. GLICLAZIDE [Concomitant]
  4. METFORMIN HCL [Concomitant]
  5. ENALAPRIL [Concomitant]
  6. OMEPRAZOLE [Concomitant]
  7. VALACYCLOVIR HCL [Concomitant]
  8. METAMIZOLE [Concomitant]
  9. ACYCLOVIR [Concomitant]
  10. ENOXACIN [Concomitant]
  11. PREDNISOLONE [Concomitant]

REACTIONS (15)
  - AORTIC VALVE DISEASE [None]
  - ATRIOVENTRICULAR BLOCK FIRST DEGREE [None]
  - BLOOD GLUCOSE INCREASED [None]
  - BLOOD URIC ACID DECREASED [None]
  - CARDIAC MURMUR [None]
  - DRUG INTERACTION [None]
  - HAEMATOCRIT DECREASED [None]
  - HYPERTENSION [None]
  - HYPONATRAEMIA [None]
  - LOSS OF CONSCIOUSNESS [None]
  - MITRAL VALVE CALCIFICATION [None]
  - PROTEINURIA [None]
  - SINUS BRADYCARDIA [None]
  - SYNCOPE [None]
  - VERTIGO [None]
